FAERS Safety Report 7153154-0 (Version None)
Quarter: 2010Q4

REPORT INFORMATION
  Report Type: 
  Country: None (occurrence: None)
  Receive Date: 20101213
  Receipt Date: 20101201
  Transmission Date: 20110411
  Serious: Yes (Hospitalization)
  Sender: FDA-Public Use
  Company Number: CH-GENZYME-CLOF-1001342

PATIENT
  Sex: Female
  Weight: 55 kg

DRUGS (6)
  1. EVOLTRA [Suspect]
     Indication: ACUTE MYELOID LEUKAEMIA
     Dosage: 24.15 MG, QDX5
     Route: 042
     Dates: start: 20101106, end: 20101110
  2. IDARUBICIN [Suspect]
     Indication: ACUTE MYELOID LEUKAEMIA
     Dosage: 19.3 MG, QD
     Route: 042
     Dates: start: 20101106, end: 20101108
  3. CYTARABINE [Suspect]
     Indication: ACUTE MYELOID LEUKAEMIA
     Dosage: 322 MG, QD
     Dates: start: 20101106, end: 20101112
  4. SOLU-MEDROL [Concomitant]
     Indication: ANTIEMETIC SUPPORTIVE CARE
     Dosage: 125 MG, UNK
     Route: 042
     Dates: start: 20101106, end: 20101112
  5. ZYLORIC [Concomitant]
     Indication: NEPHROLITHIASIS
     Dosage: 300 MG, UNK
     Route: 048
     Dates: start: 20101106, end: 20101113
  6. NEXIUM [Concomitant]
     Indication: PROPHYLAXIS
     Dosage: 40 MG, UNK
     Route: 048
     Dates: start: 20101106, end: 20101129

REACTIONS (1)
  - NEPHROLITHIASIS [None]
